FAERS Safety Report 11235549 (Version 2)
Quarter: 2015Q4

REPORT INFORMATION
  Report Type: Spontaneous
  Country: BE (occurrence: BE)
  Receive Date: 20150702
  Receipt Date: 20151020
  Transmission Date: 20160304
  Serious: Yes (Hospitalization, Other)
  Sender: FDA-Public Use
  Company Number: BE-BRISTOL-MYERS SQUIBB COMPANY-BMS-2015-042865

PATIENT
  Age: 45 Year
  Sex: Male

DRUGS (3)
  1. AMPHETAMINE [Suspect]
     Active Substance: AMPHETAMINE
     Indication: PRODUCT USED FOR UNKNOWN INDICATION
     Route: 042
  2. SPRYCEL [Suspect]
     Active Substance: DASATINIB
     Indication: CHRONIC MYELOID LEUKAEMIA
     Dosage: 1 DF, QD
     Route: 048
     Dates: start: 201005
  3. SPRYCEL [Suspect]
     Active Substance: DASATINIB
     Dosage: 70 MG, UNK
     Route: 048
     Dates: start: 201005

REACTIONS (4)
  - Malignant neoplasm progression [Unknown]
  - Road traffic accident [Unknown]
  - Pleural effusion [Not Recovered/Not Resolved]
  - Anaemia [Unknown]

NARRATIVE: CASE EVENT DATE: 20150604
